FAERS Safety Report 4342434-X (Version None)
Quarter: 2004Q2

REPORT INFORMATION
  Report Type: 
  Country: None (occurrence: None)
  Receive Date: 20040413
  Receipt Date: 20040401
  Transmission Date: 20050107
  Serious: Yes (Hospitalization)
  Sender: FDA-Public Use
  Company Number: NSADSS2002023248

PATIENT
  Age: 53 Year
  Sex: Male

DRUGS (5)
  1. REMICADE [Suspect]
     Indication: RHEUMATOID ARTHRITIS
     Dosage: SEE IMAGE
     Route: 041
     Dates: start: 20020501, end: 20020501
  2. REMICADE [Suspect]
     Indication: RHEUMATOID ARTHRITIS
     Dosage: SEE IMAGE
     Route: 041
     Dates: start: 20020505, end: 20020505
  3. REMICADE [Suspect]
     Indication: RHEUMATOID ARTHRITIS
     Dosage: SEE IMAGE
     Route: 041
     Dates: start: 20020601, end: 20020601
  4. CORTICOSTEROIDS, NOS (CORTICOSTEROIDS) [Suspect]
     Indication: RHEUMATOID ARTHRITIS
     Dates: start: 19990803, end: 20020621
  5. METHOTRXATE [Suspect]
     Indication: RHEUMATOID ARTHRITIS
     Dosage: 15 MG, ORAL
     Route: 048
     Dates: start: 19990803, end: 20020621

REACTIONS (2)
  - BACTERIAL INFECTION [None]
  - PULMONARY TUBERCULOSIS [None]
